FAERS Safety Report 5508239-9 (Version None)
Quarter: 2007Q4

REPORT INFORMATION
  Report Type: 
  Country: None (occurrence: None)
  Receive Date: 20071106
  Receipt Date: 20070314
  Transmission Date: 20080405
  Serious: No
  Sender: FDA-Public Use
  Company Number: A0643238A

PATIENT

DRUGS (2)
  1. AMOXICILLIN [Suspect]
     Route: 048
  2. UNKNOWN [Concomitant]

REACTIONS (1)
  - CHROMATURIA [None]
